FAERS Safety Report 6865269 (Version 2)
Quarter: 2013Q2

REPORT INFORMATION
  Report Type: Spontaneous
  Country: US (occurrence: US)
  Receive Date: 20081223
  Receipt Date: 20130529
  Transmission Date: 20140414
  Serious: Yes (Death)
  Sender: FDA-Public Use
  Company Number: US-PFIZER INC-2008154148

PATIENT
  Age: 20 Year
  Sex: Male

DRUGS (6)
  1. ALPRAZOLAM [Suspect]
     Dosage: UNK
  2. COCAINE [Suspect]
     Dosage: UNK
  3. MARIJUANA [Suspect]
     Dosage: UNK
  4. OPIOIDS [Suspect]
     Dosage: UNK
  5. PROMETHAZINE/CODEINE [Suspect]
     Dosage: UNK
  6. ZOLPIDEM [Suspect]
     Dosage: UNK

REACTIONS (3)
  - Death [Fatal]
  - Cardiac arrest [Fatal]
  - Respiratory arrest [Fatal]
